FAERS Safety Report 7081779-X (Version None)
Quarter: 2010Q4

REPORT INFORMATION
  Report Type: 
  Country: None (occurrence: None)
  Receive Date: 20101103
  Receipt Date: 20101026
  Transmission Date: 20110411
  Serious: Yes (Death, Hospitalization)
  Sender: FDA-Public Use
  Company Number: US-CELGENEUS-163-21880-10092704

PATIENT
  Sex: Female
  Weight: 42 kg

DRUGS (13)
  1. REVLIMID [Suspect]
     Indication: MULTIPLE MYELOMA
     Route: 048
     Dates: start: 20100430
  2. AZOPT [Concomitant]
     Route: 047
  3. LUMIGAN [Concomitant]
     Dosage: 0.03%
     Route: 047
  4. OMEPRAZOLE [Concomitant]
     Route: 048
  5. RENAGEL [Concomitant]
     Route: 048
  6. DILAUDID [Concomitant]
     Indication: PAIN
     Route: 065
     Dates: start: 20100901
  7. ATIVAN [Concomitant]
     Indication: PAIN
     Route: 065
     Dates: start: 20100901
  8. OXYCODONE HCL [Concomitant]
     Indication: PAIN
     Route: 065
     Dates: start: 20100901
  9. ACYCLOVIR SODIUM [Concomitant]
     Route: 048
  10. DEXAMETHASONE [Concomitant]
     Route: 065
  11. LORTAB [Concomitant]
     Indication: PAIN
     Dosage: 5/325
     Route: 048
  12. FLUCONAZOLE [Concomitant]
     Indication: PROPHYLAXIS
     Route: 065
  13. CALCITRIOL [Concomitant]
     Route: 065

REACTIONS (4)
  - ASTHENIA [None]
  - FAILURE TO THRIVE [None]
  - MULTIPLE MYELOMA [None]
  - RENAL FAILURE ACUTE [None]
